FAERS Safety Report 9694651 (Version 1)
Quarter: 2013Q4

REPORT INFORMATION
  Report Type: Spontaneous
  Country: US (occurrence: US)
  Receive Date: 20131119
  Receipt Date: 20131119
  Transmission Date: 20140711
  Serious: No
  Sender: FDA-Public Use
  Company Number: US-009507513-1311USA005441

PATIENT
  Sex: Female
  Weight: 61.68 kg

DRUGS (1)
  1. NEXPLANON [Suspect]
     Dosage: ONE ROD
     Route: 059
     Dates: start: 20131111

REACTIONS (2)
  - Device difficult to use [Unknown]
  - No adverse event [Unknown]
